FAERS Safety Report 14656345 (Version 1)
Quarter: 2018Q1

REPORT INFORMATION
  Report Type: Spontaneous
  Country: US (occurrence: US)
  Receive Date: 20180319
  Receipt Date: 20180319
  Transmission Date: 20180509
  Serious: No
  Sender: FDA-Public Use
  Company Number: None

PATIENT
  Age: 42 Year
  Sex: Female
  Weight: 79.38 kg

DRUGS (7)
  1. VALSARTAN 160MG [Concomitant]
     Active Substance: VALSARTAN
  2. AMLODIPINE BESYLATE 5MG [Concomitant]
     Active Substance: AMLODIPINE BESYLATE
  3. FOLIC ACID 300MCG [Concomitant]
  4. SPIRONOLACTONE. [Concomitant]
     Active Substance: SPIRONOLACTONE
  5. SPIRONOLACTONE TABLETS, UPS [Suspect]
     Active Substance: SPIRONOLACTONE
     Indication: ACNE
     Dosage: 1-2 PILLS /DAY MOUTH?02-01-2015
     Route: 048
  6. VITAMIN D 2000IU [Concomitant]
  7. PRAVASTATIN SODIUM 40MG [Concomitant]
     Active Substance: PRAVASTATIN SODIUM

REACTIONS (3)
  - Acne [None]
  - Acne cystic [None]
  - Product substitution issue [None]

NARRATIVE: CASE EVENT DATE: 20180310
